FAERS Safety Report 17457199 (Version 3)
Quarter: 2020Q1

REPORT INFORMATION
  Report Type: Report from Study
  Country: None (occurrence: TW)
  Receive Date: 20200225
  Receipt Date: 20200330
  Transmission Date: 20200409
  Serious: Yes (Other)
  Sender: FDA-Public Use
  Company Number: TW-ABBVIE-20K-153-3288221-00

PATIENT
  Age: 46 Year
  Sex: Female
  Weight: 54 kg

DRUGS (1)
  1. HUMIRA [Suspect]
     Active Substance: ADALIMUMAB
     Indication: CROHN^S DISEASE
     Route: 058
     Dates: start: 20190807, end: 20200205

REACTIONS (6)
  - Breast cancer metastatic [Unknown]
  - Salpingo-oophorectomy bilateral [Recovered/Resolved]
  - Ovarian cancer metastatic [Recovered/Resolved]
  - Post procedural complication [Recovered/Resolved]
  - Unevaluable event [Unknown]
  - Ovarian neoplasm [Recovered/Resolved]

NARRATIVE: CASE EVENT DATE: 201909
